FAERS Safety Report 10096644 (Version 3)
Quarter: 2014Q2

REPORT INFORMATION
  Report Type: Spontaneous
  Country: BR (occurrence: BR)
  Receive Date: 20140422
  Receipt Date: 20140606
  Transmission Date: 20141212
  Serious: Yes (Life-Threatening, Hospitalization)
  Sender: FDA-Public Use
  Company Number: BR-BRISTOL-MYERS SQUIBB COMPANY-20634903

PATIENT
  Age: 89 Year
  Sex: Male

DRUGS (3)
  1. ELIQUIS [Suspect]
     Indication: INTRACARDIAC THROMBUS
     Dosage: ELIQUIS 5 MG SPLITTING THE DRUG IN THE MIDDLE
     Route: 048
     Dates: start: 2014
  2. LOSARTAN [Concomitant]
     Dates: start: 2014
  3. SELOZOK [Concomitant]
     Dates: start: 2014

REACTIONS (6)
  - Cardiac arrest [Unknown]
  - Cardiac disorder [Unknown]
  - Dyspnoea [Unknown]
  - Chest pain [Unknown]
  - Wrong technique in drug usage process [Unknown]
  - Dysphagia [Unknown]
